FAERS Safety Report 20951797 (Version 2)
Quarter: 2022Q3

REPORT INFORMATION
  Report Type: Spontaneous
  Country: JP (occurrence: JP)
  Receive Date: 20220613
  Receipt Date: 20220808
  Transmission Date: 20221026
  Serious: Yes (Other)
  Sender: FDA-Public Use
  Company Number: JP-TAKEDA-2022TJP055000

PATIENT

DRUGS (1)
  1. ZEJULA [Suspect]
     Active Substance: NIRAPARIB
     Indication: Ovarian cancer recurrent
     Dosage: 200 MILLIGRAM
     Route: 048
     Dates: start: 202111, end: 202204

REACTIONS (4)
  - Ovarian cancer recurrent [Not Recovered/Not Resolved]
  - Disease progression [Not Recovered/Not Resolved]
  - Pigmentation disorder [Recovering/Resolving]
  - Photosensitivity reaction [Recovering/Resolving]
